FAERS Safety Report 9052532 (Version 3)
Quarter: 2013Q1

REPORT INFORMATION
  Report Type: Spontaneous
  Country: BR (occurrence: BR)
  Receive Date: 20130207
  Receipt Date: 20130314
  Transmission Date: 20140127
  Serious: Yes (Death, Other)
  Sender: FDA-Public Use
  Company Number: BR-GENZYME-CAMP-1002714

PATIENT
  Age: 39 None
  Sex: Male

DRUGS (1)
  1. CAMPATH [Suspect]
     Indication: BONE MARROW CONDITIONING REGIMEN
     Dosage: 30 MG, QD
     Route: 042
     Dates: start: 20121211, end: 20121211

REACTIONS (4)
  - Renal failure [Fatal]
  - Lung disorder [Fatal]
  - Respiratory failure [Fatal]
  - Myocardial infarction [Fatal]
